FAERS Safety Report 6126233-4 (Version None)
Quarter: 2009Q1

REPORT INFORMATION
  Report Type: 
  Country: None (occurrence: None)
  Receive Date: 20090320
  Receipt Date: 20090309
  Transmission Date: 20090719
  Serious: No
  Sender: FDA-Public Use
  Company Number: JAUSA35422

PATIENT
  Sex: Female

DRUGS (2)
  1. NIZORAL [Suspect]
     Route: 048
     Dates: start: 19981124, end: 19981201
  2. NIZORAL [Suspect]
     Indication: FUNGAL INFECTION
     Route: 048
     Dates: start: 19981124, end: 19981201

REACTIONS (3)
  - ABDOMINAL PAIN [None]
  - NAUSEA [None]
  - PYREXIA [None]
